FAERS Safety Report 13798512 (Version 2)
Quarter: 2017Q3

REPORT INFORMATION
  Report Type: Spontaneous
  Country: US (occurrence: US)
  Receive Date: 20170727
  Receipt Date: 20170906
  Transmission Date: 20171127
  Serious: No
  Sender: FDA-Public Use
  Company Number: PHEH2017US022277

PATIENT
  Sex: Female
  Weight: 45.35 kg

DRUGS (1)
  1. CIPROFLOXACIN. [Suspect]
     Active Substance: CIPROFLOXACIN
     Indication: HERPES OPHTHALMIC
     Dosage: 2 GTT, Q4H
     Route: 047

REACTIONS (4)
  - Eyelid irritation [Not Recovered/Not Resolved]
  - Lacrimation increased [Not Recovered/Not Resolved]
  - Rhinorrhoea [Unknown]
  - Product container issue [Unknown]
